FAERS Safety Report 17011289 (Version 3)
Quarter: 2019Q4

REPORT INFORMATION
  Report Type: Spontaneous
  Country: IT (occurrence: IT)
  Receive Date: 20191108
  Receipt Date: 20191202
  Transmission Date: 20200122
  Serious: Yes (Other)
  Sender: FDA-Public Use
  Company Number: IT-PFIZER INC-2019478590

PATIENT
  Age: 72 Year
  Sex: Male

DRUGS (6)
  1. PREGABALIN. [Concomitant]
     Active Substance: PREGABALIN
     Indication: ANALGESIC THERAPY
     Dosage: 75 MG, 2X/DAY
  2. OXALIPLATIN. [Suspect]
     Active Substance: OXALIPLATIN
     Indication: NEUROENDOCRINE CARCINOMA METASTATIC
     Dosage: 80 MG/M2, CYCLIC (DAY 8,22) CYCLES REPEATED EVERY 28 DAYS
  3. FLUOROURACIL 5 FU [Suspect]
     Active Substance: FLUOROURACIL
     Indication: NEUROENDOCRINE CARCINOMA METASTATIC
     Dosage: UNK UNK, CYCLIC (900 MG/MQ/DAY) DAY 1-2, 8-9, 15-16, 22-23) CYCLES REPEATED EVERY 28 DAYS
  4. IRINOTECAN HCL [Suspect]
     Active Substance: IRINOTECAN HYDROCHLORIDE
     Indication: NEUROENDOCRINE CARCINOMA METASTATIC
     Dosage: 160 MG/M2, CYCLIC (DAY 1,15) CYCLES REPEATED EVERY 28 DAYS
  5. BEVACIZUMAB. [Suspect]
     Active Substance: BEVACIZUMAB
     Indication: NEUROENDOCRINE CARCINOMA METASTATIC
     Dosage: 5 MG/KG, CYCLIC (DAY 1,15) CYCLES REPEATED EVERY 28 DAYS
  6. NALOXONE/OXYCODONE [Concomitant]
     Active Substance: NALOXONE HYDROCHLORIDE\OXYCODONE HYDROCHLORIDE
     Indication: ANALGESIC THERAPY
     Dosage: 10 MG, 2X/DAY

REACTIONS (8)
  - Nausea [Unknown]
  - Alopecia [Unknown]
  - Epistaxis [Unknown]
  - Asthenia [Unknown]
  - Diarrhoea [Unknown]
  - Neutropenia [Unknown]
  - Rhinitis [Unknown]
  - Neurotoxicity [Unknown]
